FAERS Safety Report 24833810 (Version 1)
Quarter: 2025Q1

REPORT INFORMATION
  Report Type: Spontaneous
  Country: JP (occurrence: JP)
  Receive Date: 20250112
  Receipt Date: 20250112
  Transmission Date: 20250409
  Serious: Yes (Death, Other)
  Sender: ALEXION PHARMACEUTICALS
  Company Number: JP-ASTRAZENECA-250002074_064320_P_1

PATIENT

DRUGS (6)
  1. ANDEXXA [Suspect]
     Active Substance: ANDEXANET ALFA
     Indication: Haemorrhage
  2. ANDEXXA [Suspect]
     Active Substance: ANDEXANET ALFA
     Route: 042
  3. ANDEXXA [Suspect]
     Active Substance: ANDEXANET ALFA
  4. ANDEXXA [Suspect]
     Active Substance: ANDEXANET ALFA
     Route: 042
  5. XARELTO [Concomitant]
     Active Substance: RIVAROXABAN
     Route: 048
  6. XARELTO [Concomitant]
     Active Substance: RIVAROXABAN

REACTIONS (1)
  - Shock haemorrhagic [Fatal]
